FAERS Safety Report 6544243-X (Version None)
Quarter: 2010Q1

REPORT INFORMATION
  Report Type: 
  Country: None (occurrence: None)
  Receive Date: 20100120
  Receipt Date: 20100108
  Transmission Date: 20100710
  Serious: Yes (Other)
  Sender: FDA-Public Use
  Company Number: GR-ELI_LILLY_AND_COMPANY-GR201001001274

PATIENT
  Age: 64 Year
  Sex: Female
  Weight: 65 kg

DRUGS (8)
  1. CYMBALTA [Suspect]
     Indication: DEPRESSION
     Dosage: 30 MG, DAILY (1/D)
     Route: 048
     Dates: start: 20091015, end: 20091117
  2. CYMBALTA [Suspect]
     Dosage: 30 MG, DAILY (1/D)
     Dates: start: 20091101
  3. GLUCOPHAGE [Concomitant]
     Indication: DIABETES MELLITUS
     Dosage: UNK, UNK
     Route: 048
  4. SOLOSA [Concomitant]
     Indication: DIABETES MELLITUS
     Dosage: UNK, UNK
     Route: 048
  5. LIPITOR [Concomitant]
     Indication: HYPERLIPIDAEMIA
     Dosage: UNK, UNK
     Route: 048
  6. LYRICA [Concomitant]
     Indication: DEPRESSION
     Dosage: 150 MG, DAILY (1/D)
     Route: 048
  7. LEXOTANIL [Concomitant]
     Indication: DEPRESSION
     Dosage: 3 MG, DAILY (1/D)
     Route: 048
  8. ACTONEL [Concomitant]
     Indication: OSTEOPOROSIS
     Dosage: UNK, UNK
     Route: 048

REACTIONS (1)
  - RASH [None]
